FAERS Safety Report 5505007-9 (Version None)
Quarter: 2007Q4

REPORT INFORMATION
  Report Type: 
  Country: None (occurrence: None)
  Receive Date: 20071031
  Receipt Date: 20071031
  Transmission Date: 20080405
  Serious: Yes (Hospitalization)
  Sender: FDA-Public Use
  Company Number: None

PATIENT
  Sex: Female
  Weight: 56 kg

DRUGS (6)
  1. TARCEVA [Suspect]
     Indication: GLIOBLASTOMA MULTIFORME
     Dosage: 200 MG
     Dates: start: 20070413
  2. AVASTIN [Suspect]
     Indication: GLIOBLASTOMA MULTIFORME
     Dosage: 10 MG/KG
     Dates: start: 20070413
  3. LEXAPRO [Concomitant]
  4. KEPPRA [Concomitant]
  5. DECADRON [Concomitant]
  6. LIPITOR [Concomitant]

REACTIONS (8)
  - BLOOD PRESSURE INCREASED [None]
  - BODY TEMPERATURE INCREASED [None]
  - CEREBROSPINAL FISTULA [None]
  - HEADACHE [None]
  - HYDROCEPHALUS [None]
  - INTRACRANIAL HYPOTENSION [None]
  - MENINGITIS [None]
  - POST PROCEDURAL COMPLICATION [None]
